FAERS Safety Report 14474741 (Version 1)
Quarter: 2018Q1

REPORT INFORMATION
  Report Type: Spontaneous
  Country: IN (occurrence: IN)
  Receive Date: 20180201
  Receipt Date: 20180201
  Transmission Date: 20180509
  Serious: Yes (Hospitalization)
  Sender: FDA-Public Use
  Company Number: IN-LANNETT COMPANY, INC.-IN-2018LAN000040

PATIENT
  Age: 30 Year
  Sex: Female

DRUGS (5)
  1. CLOFAZIMINE [Suspect]
     Active Substance: CLOFAZIMINE
     Indication: LEPROMATOUS LEPROSY
     Dosage: 50 MG, UNK (DAY 1)
     Route: 065
  2. DAPSONE. [Suspect]
     Active Substance: DAPSONE
     Indication: LEPROMATOUS LEPROSY
     Dosage: 100 MG, QD
     Route: 065
  3. RIFAMPIN. [Suspect]
     Active Substance: RIFAMPIN
     Indication: LEPROMATOUS LEPROSY
     Dosage: 600 MG, UNK
     Route: 065
  4. DAPSONE. [Suspect]
     Active Substance: DAPSONE
     Dosage: 100 MG, UNK (DAY 1)
     Route: 065
  5. CLOFAZIMINE [Suspect]
     Active Substance: CLOFAZIMINE
     Dosage: 300 MG, UNK
     Route: 065

REACTIONS (1)
  - Drug reaction with eosinophilia and systemic symptoms [Recovered/Resolved]
